FAERS Safety Report 17240418 (Version 1)
Quarter: 2020Q1

REPORT INFORMATION
  Report Type: Report from Study
  Country: CH (occurrence: CH)
  Receive Date: 20200107
  Receipt Date: 20200107
  Transmission Date: 20200409
  Serious: Yes (Death, Hospitalization)
  Sender: FDA-Public Use
  Company Number: CH-ROCHE-2506332

PATIENT
  Age: 76 Year
  Sex: Male
  Weight: 70.6 kg

DRUGS (4)
  1. ATEZOLIZUMAB. [Suspect]
     Active Substance: ATEZOLIZUMAB
     Indication: MESOTHELIOMA
     Dosage: LAST DOSE OF ATEZOLIZUMAB PRIOR TO SAE ONSET WAS GIVEN ON 11/DEC/2019
     Route: 042
     Dates: start: 20191030
  2. BEVACIZUMAB. [Suspect]
     Active Substance: BEVACIZUMAB
     Indication: MESOTHELIOMA
     Dosage: LAST DOSE OF BEVACIZUMAB WAS ADMINISTERED PRIOR TO SAE ONSET WAS GIVEN ON 11/DEC/2019
     Route: 042
     Dates: start: 20191030
  3. PEMETREXED. [Suspect]
     Active Substance: PEMETREXED
     Indication: MESOTHELIOMA
     Dosage: LAST DOSE OF  PEMETREXED PRIOR TO SAE ONSET WAS GIVEN ON 11/DEC/2019?FROM 4 TO 6 CYCLES
     Route: 042
     Dates: start: 20191030
  4. CARBOPLATIN. [Suspect]
     Active Substance: CARBOPLATIN
     Indication: MESOTHELIOMA
     Dosage: LAST DOSE OF CARBOPLATIN PRIOR TO SAE ONSET WAS GIVEN ON 11/DEC/2019?FROM 4 TO 6 CYCLES
     Route: 042
     Dates: start: 20191030

REACTIONS (2)
  - Febrile neutropenia [Fatal]
  - Cough [Fatal]

NARRATIVE: CASE EVENT DATE: 20191219
